FAERS Safety Report 14887221 (Version 5)
Quarter: 2019Q3

REPORT INFORMATION
  Report Type: Spontaneous
  Country: US (occurrence: US)
  Receive Date: 20180513
  Receipt Date: 20190710
  Transmission Date: 20191004
  Serious: Yes (Other)
  Sender: FDA-Public Use
  Company Number: US-009507513-1805USA004672

PATIENT
  Sex: Female
  Weight: 13.3 kg

DRUGS (7)
  1. VITAMINS (UNSPECIFIED) [Concomitant]
     Active Substance: VITAMINS
     Indication: ROUTINE HEALTH MAINTENANCE
     Dosage: 1 TABLET, UNK
     Route: 048
  2. HYDROCORTONE [Suspect]
     Active Substance: HYDROCORTISONE
     Indication: ADRENOGENITAL SYNDROME
     Dosage: 2.5 MG, TID (ABOUT 31 MG/M2/D), BEGAN ON DAY 2 OF LIFE
     Route: 048
  3. HYDROCORTONE [Suspect]
     Active Substance: HYDROCORTISONE
     Dosage: LABELED AS TOTAL OF 5 MG DAILY (17 MG/M2/D) IN THREE DIVIDED DOSES
     Route: 048
  4. FLUDROCORTISONE [Concomitant]
     Active Substance: FLUDROCORTISONE
     Indication: ADRENOGENITAL SYNDROME
     Dosage: 0.1 MG, TWICE DAILY
  5. SODIUM CHLORIDE. [Concomitant]
     Active Substance: SODIUM CHLORIDE
     Indication: ADRENOGENITAL SYNDROME
     Dosage: 250 MG FOUR TIMES PER DAY
  6. HYDROCORTONE [Suspect]
     Active Substance: HYDROCORTISONE
     Dosage: LABELED AS 1 MG THREE TIMES DAILY OR 7.5 MG/M2/D
     Route: 048
  7. HYDROCORTONE [Suspect]
     Active Substance: HYDROCORTISONE
     Dosage: TOTAL DAILY DOSE: 3 MG
     Route: 048
     Dates: start: 20180510

REACTIONS (6)
  - Product compounding quality issue [Unknown]
  - Product availability issue [Unknown]
  - Cushing^s syndrome [Recovered/Resolved]
  - Accidental overdose [Unknown]
  - Incorrect dose administered [Unknown]
  - Product preparation error [Unknown]
